FAERS Safety Report 11314397 (Version 1)
Quarter: 2015Q3

REPORT INFORMATION
  Report Type: Spontaneous
  Country: US (occurrence: US)
  Receive Date: 20150727
  Receipt Date: 20150727
  Transmission Date: 20151125
  Serious: No
  Sender: FDA-Public Use
  Company Number: US-GLAXOSMITHKLINE-US2015105946

PATIENT
  Sex: Female

DRUGS (13)
  1. GLUCOSAMINE [Concomitant]
     Active Substance: GLUCOSAMINE
  2. VERELAN [Concomitant]
     Active Substance: VERAPAMIL HYDROCHLORIDE
  3. ZANTAC [Concomitant]
     Active Substance: RANITIDINE HYDROCHLORIDE
  4. PREDNISONE. [Concomitant]
     Active Substance: PREDNISONE
  5. ADVAIR DISKUS [Suspect]
     Active Substance: FLUTICASONE PROPIONATE\SALMETEROL XINAFOATE
     Indication: ASTHMA
     Dosage: 1 PUFF(S), QD
     Route: 055
  6. SYNTHROID [Concomitant]
     Active Substance: LEVOTHYROXINE SODIUM
  7. FOLIC [Concomitant]
  8. ASPIRIN. [Concomitant]
     Active Substance: ASPIRIN
  9. IRON [Concomitant]
     Active Substance: IRON
  10. PANTOPRAZOLE [Concomitant]
     Active Substance: PANTOPRAZOLE SODIUM
  11. HYZAAR [Concomitant]
     Active Substance: HYDROCHLOROTHIAZIDE\LOSARTAN POTASSIUM
  12. OCUVITE [Concomitant]
     Active Substance: VITAMINS
  13. SIMVASTATIN. [Concomitant]
     Active Substance: SIMVASTATIN

REACTIONS (1)
  - Dysphonia [Not Recovered/Not Resolved]
